FAERS Safety Report 7749416-6 (Version None)
Quarter: 2011Q3

REPORT INFORMATION
  Report Type: 
  Country: None (occurrence: None)
  Receive Date: 20110914
  Receipt Date: 20110902
  Transmission Date: 20111222
  Serious: Yes (Other)
  Sender: FDA-Public Use
  Company Number: PR-PFIZER INC-2007105514

PATIENT
  Sex: Male
  Weight: 70.8 kg

DRUGS (4)
  1. TEGRETOL [Concomitant]
     Dosage: UNK
  2. KLONOPIN [Interacting]
     Dosage: UNK
  3. LYRICA [Interacting]
     Indication: NEUROPATHY PERIPHERAL
     Dosage: 75 MG, 2X/DAY
     Dates: start: 20071214
  4. DILANTIN-125 [Suspect]
     Dosage: UNK

REACTIONS (9)
  - CEREBROVASCULAR ACCIDENT [None]
  - COORDINATION ABNORMAL [None]
  - NEUROPATHY PERIPHERAL [None]
  - IMPAIRED WORK ABILITY [None]
  - DRUG INTERACTION [None]
  - OSTEOPENIA [None]
  - FEELING DRUNK [None]
  - SPEECH DISORDER [None]
  - EYE DISORDER [None]
